FAERS Safety Report 16776619 (Version 2)
Quarter: 2019Q4

REPORT INFORMATION
  Report Type: Report from Study
  Country: ES (occurrence: ES)
  Receive Date: 20190905
  Receipt Date: 20191204
  Transmission Date: 20200122
  Serious: Yes (Death)
  Sender: FDA-Public Use
  Company Number: ES-MYLANLABS-2019M1083156

PATIENT
  Age: 68 Year
  Sex: Male

DRUGS (6)
  1. DILTIAZEM. [Suspect]
     Active Substance: DILTIAZEM
     Indication: ARRHYTHMIA
     Dosage: 180 MG DAILY
     Route: 048
     Dates: start: 20170922
  2. MORPHINE [Suspect]
     Active Substance: MORPHINE
     Indication: PAIN
     Dosage: 20 MG DAILY
     Route: 048
     Dates: start: 20190312
  3. DEXAMETHASONE                      /00016005/ [Concomitant]
     Active Substance: DEXAMETHASONE
     Indication: DECREASED APPETITE
     Dosage: 4 MG DAILY
     Route: 048
  4. FENTANYL. [Suspect]
     Active Substance: FENTANYL
     Indication: PAIN
     Dosage: 25 MICROGRAM, QH
     Route: 062
     Dates: start: 20190218
  5. NALOXEGOL [Suspect]
     Active Substance: NALOXEGOL
     Indication: CONSTIPATION
     Dosage: 25 MG
     Route: 048
     Dates: start: 20190326
  6. DEXAMETHASONE                      /00016005/ [Concomitant]
     Active Substance: DEXAMETHASONE
     Indication: ASTHENIA
     Dosage: UNK

REACTIONS (5)
  - Peritonitis [Fatal]
  - Multiple organ dysfunction syndrome [Fatal]
  - Disease progression [Fatal]
  - Sepsis [Fatal]
  - Intestinal perforation [Fatal]

NARRATIVE: CASE EVENT DATE: 20190326
